FAERS Safety Report 5610206-1 (Version None)
Quarter: 2008Q1

REPORT INFORMATION
  Report Type: 
  Country: None (occurrence: None)
  Receive Date: 20080131
  Receipt Date: 20071010
  Transmission Date: 20080703
  Serious: Yes (Other)
  Sender: FDA-Public Use
  Company Number: TR-ABBOTT-07P-161-0374376-00

PATIENT
  Sex: Female
  Weight: 84 kg

DRUGS (4)
  1. HUMIRA [Suspect]
     Indication: RHEUMATOID ARTHRITIS
     Route: 058
     Dates: start: 20070501, end: 20070701
  2. PREDNISOLONE [Concomitant]
     Indication: DRUG USE FOR UNKNOWN INDICATION
     Route: 048
  3. METHOTREXATE [Concomitant]
     Indication: RHEUMATOID ARTHRITIS
  4. METOPROLOL TARTRATE [Concomitant]
     Indication: HYPERTENSION
     Route: 048

REACTIONS (4)
  - ARTHRITIS [None]
  - CHILLS [None]
  - LYMPHADENOPATHY [None]
  - PYREXIA [None]
